FAERS Safety Report 12418164 (Version 2)
Quarter: 2016Q2

REPORT INFORMATION
  Report Type: Spontaneous
  Country: IT (occurrence: IT)
  Receive Date: 20160531
  Receipt Date: 20160603
  Transmission Date: 20160815
  Serious: Yes (Death, Hospitalization, Other)
  Sender: FDA-Public Use
  Company Number: IT-AMGEN-ITASP2016068622

PATIENT
  Age: 65 Year
  Sex: Female

DRUGS (10)
  1. BRILIQUE [Concomitant]
     Active Substance: TICAGRELOR
  2. LASIX [Concomitant]
     Active Substance: FUROSEMIDE
  3. TOTALIP [Concomitant]
     Active Substance: ATORVASTATIN
  4. VALPRESSION [Concomitant]
     Active Substance: VALSARTAN
  5. CORLENTOR [Concomitant]
     Active Substance: IVABRADINE HYDROCHLORIDE
  6. ENBREL [Suspect]
     Active Substance: ETANERCEPT
     Indication: PSORIATIC ARTHROPATHY
     Dosage: 50 MG, WEEKLY
     Route: 058
     Dates: start: 20100301, end: 20160324
  7. CONGESCOR [Concomitant]
     Active Substance: BISOPROLOL
  8. SEACOR [Concomitant]
     Active Substance: OMEGA-3 FATTY ACIDS
  9. SOLOSA [Concomitant]
     Active Substance: GLIMEPIRIDE
  10. GLUCOPHAGE [Concomitant]
     Active Substance: METFORMIN HYDROCHLORIDE

REACTIONS (5)
  - Adenocarcinoma pancreas [Fatal]
  - Abdominal pain upper [Fatal]
  - Respiratory failure [Fatal]
  - Hepatorenal failure [Fatal]
  - Jaundice cholestatic [Fatal]

NARRATIVE: CASE EVENT DATE: 201601
